FAERS Safety Report 14151806 (Version 1)
Quarter: 2017Q4

REPORT INFORMATION
  Report Type: Spontaneous
  Country: US (occurrence: None)
  Receive Date: 20171101
  Receipt Date: 20171101
  Transmission Date: 20180321
  Serious: No
  Sender: FDA-Public Use
  Company Number: None

PATIENT
  Age: 71 Year
  Sex: Male

DRUGS (1)
  1. FOSINOPRIL, 40 MG [Suspect]
     Active Substance: FOSINOPRIL
     Dosage: 40 MG AM AND 20MG PM ORAL
     Route: 048
     Dates: start: 20171002, end: 20171028

REACTIONS (2)
  - Dizziness [None]
  - Balance disorder [None]

NARRATIVE: CASE EVENT DATE: 20171101
